FAERS Safety Report 6967709-7 (Version None)
Quarter: 2010Q3

REPORT INFORMATION
  Report Type: 
  Country: None (occurrence: None)
  Receive Date: 20100907
  Receipt Date: 20100826
  Transmission Date: 20110219
  Serious: Yes (Hospitalization, Other)
  Sender: FDA-Public Use
  Company Number: US-PFIZER INC-2010108551

PATIENT
  Sex: Male
  Weight: 83.6 kg

DRUGS (2)
  1. GEODON [Suspect]
     Indication: BIPOLAR DISORDER
     Dosage: 240 MG, DAILY
     Route: 048
     Dates: start: 20100801, end: 20100824
  2. ABILIFY [Concomitant]
     Indication: BIPOLAR DISORDER
     Dosage: UNK

REACTIONS (5)
  - ELECTROCARDIOGRAM QT PROLONGED [None]
  - NAUSEA [None]
  - NYSTAGMUS [None]
  - VISUAL IMPAIRMENT [None]
  - VOMITING [None]
